FAERS Safety Report 10108935 (Version 2)
Quarter: 2014Q2

REPORT INFORMATION
  Report Type: Report from Study
  Country: CA (occurrence: CA)
  Receive Date: 20140425
  Receipt Date: 20140425
  Transmission Date: 20141212
  Serious: Yes (Hospitalization, Other)
  Sender: FDA-Public Use
  Company Number: CA-ROCHE-1262002

PATIENT
  Age: 62 Year
  Sex: Female
  Weight: 85.7 kg

DRUGS (9)
  1. ACTEMRA [Suspect]
     Indication: RHEUMATOID ARTHRITIS
     Route: 042
     Dates: start: 20130708
  2. ARTHROTEC [Concomitant]
  3. DOXEPIN [Concomitant]
  4. METHOTREXATE [Concomitant]
  5. CALTRATE [Concomitant]
  6. DOMPERIDONE [Concomitant]
  7. VITAMIN B12 [Concomitant]
  8. LORAZEPAM [Concomitant]
  9. DEMEROL [Concomitant]

REACTIONS (3)
  - Gastric haemorrhage [Unknown]
  - Cerebrovascular accident [Unknown]
  - Infection [Unknown]
